FAERS Safety Report 8093896-6 (Version None)
Quarter: 2012Q1

REPORT INFORMATION
  Report Type: 
  Country: None (occurrence: None)
  Receive Date: 20120131
  Receipt Date: 20120120
  Transmission Date: 20120608
  Serious: Yes (Hospitalization, Other)
  Sender: FDA-Public Use
  Company Number: PHEH2007US13698

PATIENT
  Sex: Female
  Weight: 64.399 kg

DRUGS (64)
  1. ANASTROZOLE [Concomitant]
  2. CELEBREX [Concomitant]
  3. LORCET-HD [Concomitant]
     Dosage: UNK
  4. CYCLOBENZAPRINE [Concomitant]
  5. MORPHINE [Concomitant]
  6. VICODIN [Concomitant]
  7. AREDIA [Suspect]
     Indication: METASTASES TO BONE
     Dosage: 90 MG, QMO
     Route: 042
     Dates: start: 20010801, end: 20041011
  8. NAVELBINE [Concomitant]
     Dosage: UNK, UNK
  9. DOCETAXEL [Concomitant]
     Dosage: UNK
  10. MIACALCIN [Concomitant]
     Dosage: UNK
  11. HYDROCODONE BITARTRATE [Concomitant]
     Dosage: 5 MG, PRN
     Route: 048
  12. AROMASIN [Concomitant]
  13. FOSAMAX [Concomitant]
  14. TEQUIN [Concomitant]
  15. NEURONTIN [Concomitant]
  16. CLOBETASOL [Concomitant]
  17. TRAMADOL HCL [Concomitant]
  18. DECADRON                                /NET/ [Concomitant]
  19. FLEXERIL [Concomitant]
  20. GENTAMICIN [Concomitant]
  21. CONCERTA [Concomitant]
  22. METHOTREXATE [Concomitant]
     Dosage: 2.5 MG, QW
  23. PERIDEX [Concomitant]
  24. SOMA [Concomitant]
  25. SKELAXIN [Concomitant]
  26. AMBIEN [Concomitant]
  27. MELOXICAM [Concomitant]
  28. ARMODAFINIL [Concomitant]
  29. PEPCID [Concomitant]
  30. TRAZODONE HCL [Concomitant]
  31. BICITRA                            /02399901/ [Concomitant]
  32. ARIMIDEX [Concomitant]
     Dosage: UNK
     Dates: start: 20010801
  33. FASLODEX [Concomitant]
     Dosage: 250 MG, QMO
     Route: 030
     Dates: start: 20041213
  34. TAXOTERE [Concomitant]
     Dosage: 20 MG, UNK
  35. GEMZAR [Concomitant]
  36. ANCEF [Concomitant]
  37. DIAZEPAM [Concomitant]
  38. PROTONIX [Concomitant]
  39. VITAMIN K TAB [Concomitant]
  40. FLAGYL [Concomitant]
     Dosage: 250 MG, TID
  41. OMEPRAZOLE [Concomitant]
     Dosage: 40 MG, QD
  42. GEMCITABINE [Concomitant]
  43. ULTRACET [Concomitant]
  44. DURAGESIC-100 [Concomitant]
     Dosage: UNK
  45. LORTAB [Concomitant]
     Dosage: UNK
  46. EFFEXOR XR [Concomitant]
  47. BENADRYL ^ACHE^ [Concomitant]
  48. PREDNISONE TAB [Concomitant]
     Dosage: 10 MG, QD
  49. AMOXICILLIN [Concomitant]
  50. CEPHALEXIN [Concomitant]
  51. ACYCLOVIR [Concomitant]
  52. TAGAMET [Concomitant]
  53. RITALIN [Concomitant]
  54. QUININE SULFATE [Concomitant]
  55. MAXIPIME [Concomitant]
  56. PROPOXYPHENE NAPSYLATE W/ ACETAMINOPHEN [Concomitant]
  57. PHENERGAN [Concomitant]
  58. ULTRAM [Concomitant]
     Dosage: 50 MG, PRN
  59. ASACOL [Concomitant]
     Dosage: 2 DF, BID
  60. ZOMETA [Suspect]
     Dosage: 4 MG, UNK
     Route: 042
     Dates: start: 20020524
  61. PROMETHAZINE [Concomitant]
  62. HYDROXYZINE [Concomitant]
  63. PERI-COLACE [Concomitant]
  64. WARFARIN SODIUM [Concomitant]

REACTIONS (100)
  - OSTEOSCLEROSIS [None]
  - DEVICE RELATED INFECTION [None]
  - OSTEITIS [None]
  - LOCALISED INFECTION [None]
  - WEIGHT DECREASED [None]
  - BONE SCAN ABNORMAL [None]
  - ARTERIOSCLEROSIS [None]
  - TENDON DISORDER [None]
  - VISION BLURRED [None]
  - BREAST CANCER METASTATIC [None]
  - BONE ATROPHY [None]
  - SEBORRHOEIC KERATOSIS [None]
  - HYPERTENSION [None]
  - SUPRAVENTRICULAR TACHYCARDIA [None]
  - GINGIVAL OEDEMA [None]
  - LOOSE TOOTH [None]
  - COMPUTERISED TOMOGRAM ABNORMAL [None]
  - FATIGUE [None]
  - FALL [None]
  - CHEST PAIN [None]
  - JOINT EFFUSION [None]
  - HYPOTENSION [None]
  - NEURODERMATITIS [None]
  - CROHN'S DISEASE [None]
  - PYURIA [None]
  - OSTEOPENIA [None]
  - OSTEONECROSIS OF JAW [None]
  - RECTAL HAEMORRHAGE [None]
  - IMPAIRED HEALING [None]
  - ORAL CANDIDIASIS [None]
  - METASTASES TO BONE [None]
  - LUNG NEOPLASM [None]
  - PNEUMOTHORAX [None]
  - OSTEOARTHRITIS [None]
  - HEADACHE [None]
  - FOOT FRACTURE [None]
  - METATARSUS PRIMUS VARUS [None]
  - HYPOAESTHESIA [None]
  - HAND FRACTURE [None]
  - CARDIOMEGALY [None]
  - GINGIVAL RECESSION [None]
  - HYPERCOAGULATION [None]
  - ARTHRALGIA [None]
  - ARTHRITIS [None]
  - COMPRESSION FRACTURE [None]
  - TINNITUS [None]
  - MUSCULOSKELETAL CHEST PAIN [None]
  - SYNCOPE [None]
  - FOOT DEFORMITY [None]
  - HEAD INJURY [None]
  - BLADDER PROLAPSE [None]
  - HYPOKALAEMIA [None]
  - DYSPEPSIA [None]
  - SYNOVIAL CYST [None]
  - ILEUS PARALYTIC [None]
  - HAEMATOCHEZIA [None]
  - DYSPNOEA [None]
  - INTERVERTEBRAL DISC DEGENERATION [None]
  - SPINAL DEFORMITY [None]
  - CATARACT NUCLEAR [None]
  - URINARY TRACT INFECTION [None]
  - HYPOACUSIS [None]
  - OSTEOMYELITIS [None]
  - FACE AND MOUTH X-RAY ABNORMAL [None]
  - METASTASES TO CENTRAL NERVOUS SYSTEM [None]
  - CORONARY ARTERY DISEASE [None]
  - GASTROINTESTINAL HAEMORRHAGE [None]
  - VENOUS INSUFFICIENCY [None]
  - NIGHT SWEATS [None]
  - VAGINAL INFECTION [None]
  - THROMBOPHLEBITIS [None]
  - LYMPHOEDEMA [None]
  - CORNEAL DYSTROPHY [None]
  - ASTIGMATISM [None]
  - INTESTINAL ULCER [None]
  - COLITIS [None]
  - GINGIVAL INFECTION [None]
  - DEEP VEIN THROMBOSIS [None]
  - DEPRESSIVE SYMPTOM [None]
  - BACK PAIN [None]
  - ANAEMIA [None]
  - OSTEOPOROSIS [None]
  - ARTHROPATHY [None]
  - PAIN IN EXTREMITY [None]
  - PULMONARY FIBROSIS [None]
  - STAPHYLOCOCCAL INFECTION [None]
  - HYPERGLYCAEMIA [None]
  - TENDERNESS [None]
  - DEVICE FAILURE [None]
  - SWELLING [None]
  - CHRONIC OBSTRUCTIVE PULMONARY DISEASE [None]
  - AGRANULOCYTOSIS [None]
  - STREPTOCOCCAL INFECTION [None]
  - RADIUS FRACTURE [None]
  - SPINAL DISORDER [None]
  - BUNION [None]
  - ANOGENITAL WARTS [None]
  - VARICOSE VEIN [None]
  - ARRHYTHMIA SUPRAVENTRICULAR [None]
  - BLOOD PRESSURE FLUCTUATION [None]
